FAERS Safety Report 8012523-7 (Version None)
Quarter: 2011Q4

REPORT INFORMATION
  Report Type: 
  Country: None (occurrence: None)
  Receive Date: 20111229
  Receipt Date: 20111221
  Transmission Date: 20120403
  Serious: Yes (Hospitalization)
  Sender: FDA-Public Use
  Company Number: US-BIOGENIDEC-2011BI048418

PATIENT
  Age: 33 Year
  Sex: Female

DRUGS (3)
  1. TYSABRI [Suspect]
     Indication: MULTIPLE SCLEROSIS
     Route: 042
     Dates: start: 20101216
  2. TYSABRI [Suspect]
     Route: 042
     Dates: start: 20090324, end: 20100125
  3. TYSABRI [Suspect]
     Route: 042
     Dates: start: 20061107, end: 20080728

REACTIONS (5)
  - DEVICE RELATED INFECTION [None]
  - URINARY TRACT INFECTION [None]
  - STAPHYLOCOCCAL INFECTION [None]
  - VEIN DISORDER [None]
  - SEPSIS [None]
